FAERS Safety Report 8548405-1 (Version None)
Quarter: 2012Q3

REPORT INFORMATION
  Report Type: 
  Country: None (occurrence: None)
  Receive Date: 20120719
  Receipt Date: 20120719
  Transmission Date: 20120928
  Serious: No
  Sender: FDA-Public Use
  Company Number: None

PATIENT
  Sex: Male
  Weight: 69.4003 kg

DRUGS (14)
  1. OMEPRAZOLE [Concomitant]
  2. AMLODIPINE [Concomitant]
  3. PRAVASTATIN [Concomitant]
  4. DURAGESIC-100 [Concomitant]
  5. DOXAZOSIN MESYLATE [Concomitant]
  6. RESTASIS [Concomitant]
  7. INLYTA [Suspect]
     Indication: RENAL NEOPLASM
     Dosage: 5MG ONCE PO  DOSE
     Route: 048
  8. HYDROCODONE BITARTRATE + ACETAMINOPHEN [Concomitant]
  9. POTASSIUM CHLORIDE [Concomitant]
  10. FEXOFENADINE [Concomitant]
  11. COMPAZINE [Concomitant]
  12. LOVAZA [Concomitant]
  13. NEXAVAR [Concomitant]
  14. LOPIDE [Concomitant]

REACTIONS (3)
  - ANXIETY [None]
  - DYSPNOEA [None]
  - DYSKINESIA [None]
